FAERS Safety Report 7023075-2 (Version None)
Quarter: 2010Q3

REPORT INFORMATION
  Report Type: 
  Country: None (occurrence: None)
  Receive Date: 20100930
  Receipt Date: 20100918
  Transmission Date: 20110219
  Serious: Yes (Other)
  Sender: FDA-Public Use
  Company Number: US-PFIZER INC-2010118180

PATIENT
  Sex: Female
  Weight: 77 kg

DRUGS (1)
  1. ESTRING [Suspect]
     Indication: HORMONE REPLACEMENT THERAPY
     Dosage: 2 MG, UNK
     Route: 067
     Dates: start: 20090501, end: 20100801

REACTIONS (1)
  - DIPLOPIA [None]
